FAERS Safety Report 12706084 (Version 2)
Quarter: 2016Q3

REPORT INFORMATION
  Report Type: Spontaneous
  Country: US (occurrence: US)
  Receive Date: 20160901
  Receipt Date: 20160901
  Transmission Date: 20161109
  Serious: No
  Sender: FDA-Public Use
  Company Number: US-JAZZ-2016-US-007828

PATIENT
  Sex: Female

DRUGS (15)
  1. RECLIPSEN [Concomitant]
     Active Substance: DESOGESTREL\ETHINYL ESTRADIOL
  2. VENTOLIN HFA [Concomitant]
     Active Substance: ALBUTEROL SULFATE
  3. XYREM [Suspect]
     Active Substance: SODIUM OXYBATE
     Dosage: DOSE ADJUSTMENTS
     Route: 048
  4. XYREM [Suspect]
     Active Substance: SODIUM OXYBATE
     Dosage: 4 G, SECOND DOSE
     Route: 048
     Dates: start: 201405
  5. FLEXERIL [Concomitant]
     Active Substance: CYCLOBENZAPRINE HYDROCHLORIDE
  6. METFORMIN HCL [Concomitant]
     Active Substance: METFORMIN HYDROCHLORIDE
  7. XYREM [Suspect]
     Active Substance: SODIUM OXYBATE
     Indication: NARCOLEPSY
     Dosage: 2 G, BID
     Route: 048
     Dates: start: 201106, end: 201107
  8. RITALIN [Concomitant]
     Active Substance: METHYLPHENIDATE HYDROCHLORIDE
  9. XYZAL [Concomitant]
     Active Substance: LEVOCETIRIZINE DIHYDROCHLORIDE
  10. ACYCLOVIR. [Concomitant]
     Active Substance: ACYCLOVIR
  11. NASONEX [Concomitant]
     Active Substance: MOMETASONE FUROATE
  12. PROGESTERONE. [Concomitant]
     Active Substance: PROGESTERONE
  13. XYREM [Suspect]
     Active Substance: SODIUM OXYBATE
     Dosage: 3.25 G, FIRST DOSE
     Route: 048
     Dates: start: 201405
  14. LIDOCAINE. [Concomitant]
     Active Substance: LIDOCAINE
  15. NORCO [Concomitant]
     Active Substance: ACETAMINOPHEN\HYDROCODONE BITARTRATE

REACTIONS (3)
  - Chest injury [Unknown]
  - Road traffic accident [Unknown]
  - Oral herpes [Unknown]
